FAERS Safety Report 5505587-3 (Version None)
Quarter: 2007Q4

REPORT INFORMATION
  Report Type: 
  Country: None (occurrence: None)
  Receive Date: 20071102
  Receipt Date: 20071024
  Transmission Date: 20080405
  Serious: Yes (Hospitalization, Other)
  Sender: FDA-Public Use
  Company Number: US-ABBOTT-07P-163-0422073-00

PATIENT
  Sex: Female

DRUGS (7)
  1. DEPAKOTE [Suspect]
     Indication: DRUG USE FOR UNKNOWN INDICATION
  2. FELBAMATE [Suspect]
     Indication: EPILEPSY
     Dates: end: 20060601
  3. AUGMENTIN '125' [Concomitant]
     Indication: ILL-DEFINED DISORDER
     Dates: start: 20060501
  4. LEVETIRACETAM [Concomitant]
     Indication: EPILEPSY
     Route: 048
     Dates: start: 20060327
  5. CLONAZEPAM [Concomitant]
     Indication: EPILEPSY
  6. CLONAZEPAM [Concomitant]
     Dates: start: 20050916
  7. CLONAZEPAM [Concomitant]

REACTIONS (23)
  - ADRENAL INSUFFICIENCY [None]
  - AGRANULOCYTOSIS [None]
  - CARDIAC FAILURE CONGESTIVE [None]
  - COMPUTERISED TOMOGRAM ABNORMAL [None]
  - CONVULSION [None]
  - COORDINATION ABNORMAL [None]
  - DIARRHOEA [None]
  - EAR PAIN [None]
  - FALL [None]
  - HAEMATOCRIT DECREASED [None]
  - HAEMOGLOBIN DECREASED [None]
  - HYPOTENSION [None]
  - LUNG INJURY [None]
  - PANCYTOPENIA [None]
  - PHARYNGEAL ERYTHEMA [None]
  - PLEURAL EFFUSION [None]
  - PNEUMOTHORAX [None]
  - PURULENT DISCHARGE [None]
  - RASH [None]
  - SEPSIS [None]
  - SPLENOMEGALY [None]
  - TACHYCARDIA [None]
  - WHITE BLOOD CELL COUNT DECREASED [None]
